FAERS Safety Report 4639163-1 (Version None)
Quarter: 2005Q2

REPORT INFORMATION
  Report Type: 
  Country: None (occurrence: None)
  Receive Date: 20050418
  Receipt Date: 20050412
  Transmission Date: 20051028
  Serious: Yes (Other)
  Sender: FDA-Public Use
  Company Number: 200510032BCA

PATIENT
  Age: 59 Year
  Sex: Female

DRUGS (3)
  1. CIPRO [Suspect]
     Indication: URINARY TRACT INFECTION
     Dosage: 500 MG, TOTAL DAILY, ORAL
     Route: 048
     Dates: start: 20041217, end: 20041218
  2. LISINOPRIL [Concomitant]
  3. SYNTHROID [Concomitant]

REACTIONS (7)
  - ANGIONEUROTIC OEDEMA [None]
  - DYSARTHRIA [None]
  - DYSPHAGIA [None]
  - EATING DISORDER SYMPTOM [None]
  - PHARYNGEAL OEDEMA [None]
  - SWELLING FACE [None]
  - SWOLLEN TONGUE [None]
